FAERS Safety Report 4922922-5 (Version None)
Quarter: 2006Q1

REPORT INFORMATION
  Report Type: 
  Country: None (occurrence: None)
  Receive Date: 20060224
  Receipt Date: 20051207
  Transmission Date: 20060701
  Serious: Yes (Hospitalization, Disabling)
  Sender: FDA-Public Use
  Company Number: US-MERCK-0512USA01353

PATIENT
  Age: 58 Year
  Sex: Female
  Weight: 77 kg

DRUGS (3)
  1. VIOXX [Suspect]
     Indication: ARTHRITIS
     Route: 048
     Dates: start: 20021101, end: 20030415
  2. VIOXX [Suspect]
     Indication: UPPER LIMB FRACTURE
     Route: 048
     Dates: start: 20021101, end: 20030415
  3. TYLENOL (CAPLET) [Concomitant]
     Route: 065

REACTIONS (9)
  - CEREBROVASCULAR ACCIDENT [None]
  - DEPRESSION [None]
  - HEART VALVE INSUFFICIENCY [None]
  - HYPERTENSION [None]
  - LEUKOCYTOSIS [None]
  - OBESITY [None]
  - PNEUMONIA ASPIRATION [None]
  - RESPIRATORY FAILURE [None]
  - SUBARACHNOID HAEMORRHAGE [None]
